FAERS Safety Report 10058353 (Version 2)
Quarter: 2014Q2

REPORT INFORMATION
  Report Type: Spontaneous
  Country: US (occurrence: US)
  Receive Date: 20140404
  Receipt Date: 20140415
  Transmission Date: 20141212
  Serious: Yes (Death)
  Sender: FDA-Public Use
  Company Number: US-CELGENEUS-163-POMAL-14035533

PATIENT
  Age: 81 Year
  Sex: Female

DRUGS (7)
  1. POMALYST [Suspect]
     Indication: PLASMA CELL MYELOMA
     Dosage: 3 MILLIGRAM
     Route: 048
     Dates: start: 20131108, end: 201403
  2. MYSOLINE [Concomitant]
     Indication: TREMOR
     Route: 065
     Dates: start: 2000
  3. COUMADIN [Concomitant]
     Indication: DEEP VEIN THROMBOSIS
     Route: 065
     Dates: start: 2008
  4. ATENOLOL [Concomitant]
     Indication: HYPERTENSION
     Route: 065
     Dates: start: 2000
  5. ATENOLOL [Concomitant]
     Indication: TREMOR
  6. SERAX [Concomitant]
     Indication: ANXIETY
     Route: 065
     Dates: start: 1990
  7. PLETOZ [Concomitant]
     Indication: PERIPHERAL VASCULAR DISORDER
     Route: 065
     Dates: start: 2000

REACTIONS (3)
  - Respiratory failure [Fatal]
  - Renal failure [Fatal]
  - Plasma cell myeloma [Fatal]
